FAERS Safety Report 9934272 (Version 2)
Quarter: 2014Q1

REPORT INFORMATION
  Report Type: Spontaneous
  Country: IT (occurrence: IT)
  Receive Date: 20140228
  Receipt Date: 20140307
  Transmission Date: 20141002
  Serious: Yes (Other)
  Sender: FDA-Public Use
  Company Number: IT-SA-2014SA023001

PATIENT
  Age: 41 Year
  Sex: Female
  Weight: 47 kg

DRUGS (3)
  1. ELOXATIN [Suspect]
     Indication: PANCREATIC CARCINOMA
     Route: 042
     Dates: start: 20140217
  2. IRINOTECAN HYDROCHLORIDE [Concomitant]
     Route: 042
  3. 5-FU [Concomitant]
     Route: 042

REACTIONS (3)
  - Dyslalia [Recovered/Resolved]
  - Laryngospasm [Recovered/Resolved]
  - Hyperhidrosis [Recovered/Resolved]
